FAERS Safety Report 16891829 (Version 1)
Quarter: 2019Q4

REPORT INFORMATION
  Report Type: Spontaneous
  Country: JP (occurrence: JP)
  Receive Date: 20191007
  Receipt Date: 20191007
  Transmission Date: 20200122
  Serious: Yes (Death, Hospitalization, Other)
  Sender: FDA-Public Use
  Company Number: JP-SA-2019SA265552

PATIENT
  Age: 65 Year
  Sex: Male
  Weight: 50 kg

DRUGS (2)
  1. GIMERACIL;OTERACIL;TEGAFUR [Suspect]
     Active Substance: GIMERACIL\OTERACIL\TEGAFUR
     Indication: GASTRIC CANCER
     Dosage: 40 MG/M2, BID FOR TWO WEEKS AND ONE-WEEK WASHOUT
     Route: 048
  2. OXALIPLATIN. [Suspect]
     Active Substance: OXALIPLATIN
     Indication: GASTRIC CANCER
     Dosage: 130 MG/M2, Q3W

REACTIONS (8)
  - Diffuse alveolar damage [Fatal]
  - Condition aggravated [Fatal]
  - Interstitial lung disease [Fatal]
  - Pneumonia [Fatal]
  - Hypoxia [Fatal]
  - Dyspnoea exertional [Fatal]
  - Rales [Fatal]
  - Traumatic lung injury [Fatal]
